FAERS Safety Report 21817095 (Version 2)
Quarter: 2023Q1

REPORT INFORMATION
  Report Type: Spontaneous
  Country: US (occurrence: US)
  Receive Date: 20230104
  Receipt Date: 20230104
  Transmission Date: 20230418
  Serious: Yes (Other)
  Sender: FDA-Public Use
  Company Number: US-PFIZER INC-2020195107

PATIENT
  Age: 68 Year
  Sex: Female

DRUGS (4)
  1. XELJANZ XR [Suspect]
     Active Substance: TOFACITINIB CITRATE
     Indication: Guttate psoriasis
     Dosage: UNK
     Dates: start: 20180301
  2. XELJANZ XR [Suspect]
     Active Substance: TOFACITINIB CITRATE
     Indication: Psoriatic arthropathy
     Dosage: 11 MG, DAILY
     Dates: start: 20191115, end: 20210601
  3. OTEZLA [Concomitant]
     Active Substance: APREMILAST
     Indication: Guttate psoriasis
     Dosage: 30 MG, TWICE DAILY
  4. OTEZLA [Concomitant]
     Active Substance: APREMILAST
     Indication: Psoriatic arthropathy

REACTIONS (3)
  - Breast cancer female [Unknown]
  - Invasive lobular breast carcinoma [Unknown]
  - Off label use [Unknown]

NARRATIVE: CASE EVENT DATE: 20191115
